FAERS Safety Report 15019408 (Version 2)
Quarter: 2018Q2

REPORT INFORMATION
  Report Type: Spontaneous
  Country: DE (occurrence: DE)
  Receive Date: 20180617
  Receipt Date: 20180620
  Transmission Date: 20180711
  Serious: Yes (Hospitalization)
  Sender: FDA-Public Use
  Company Number: PHHY2017DE203796

PATIENT
  Age: 67 Year
  Sex: Male
  Weight: 91 kg

DRUGS (18)
  1. CARBOPLATIN. [Suspect]
     Active Substance: CARBOPLATIN
     Indication: NON-SMALL CELL LUNG CANCER
     Dosage: 5 MG*MIN/ML
     Route: 041
  2. VENLAFAXIN [Concomitant]
     Active Substance: VENLAFAXINE HYDROCHLORIDE
     Indication: PROPHYLAXIS
     Dosage: 112.5 MG, QD
     Route: 048
  3. ABRAXANE [Suspect]
     Active Substance: PACLITAXEL
     Dosage: 100 MG/M2, QD
     Route: 041
     Dates: start: 20170125
  4. TOREM [Concomitant]
     Active Substance: TORSEMIDE
     Indication: PLEURAL EFFUSION
     Dosage: 10 MG, QD
     Route: 048
     Dates: start: 20161214
  5. NEBIVOLOL. [Concomitant]
     Active Substance: NEBIVOLOL
     Indication: PROPHYLAXIS
     Dosage: 5 MG, QD
     Route: 048
  6. ELIQUIS [Concomitant]
     Active Substance: APIXABAN
     Indication: PROPHYLAXIS
     Dosage: 2.5 MG, QD DAILY DOSE: 5 MG MILLIGRAM(S) EVERY DAY
     Route: 048
     Dates: start: 20161221, end: 20161221
  7. VALORON [Concomitant]
     Active Substance: TILIDINE HYDROCHLORIDE
     Indication: RIB FRACTURE
     Dosage: 2 DF, QD
     Route: 048
     Dates: start: 20170329
  8. ERYPO [Concomitant]
     Indication: PROPHYLAXIS
     Dosage: 30 IU, QW
     Route: 058
     Dates: start: 20170118, end: 20170201
  9. ABRAXANE [Suspect]
     Active Substance: PACLITAXEL
     Dosage: 100 MG/M2, QD
     Route: 041
     Dates: start: 20170222
  10. TAVOR [Concomitant]
     Indication: PANIC ATTACK
     Dosage: 1 MG, UNK
     Route: 048
  11. ABRAXANE [Suspect]
     Active Substance: PACLITAXEL
     Dosage: 100 MG/M2, QD
     Route: 041
     Dates: start: 20170315
  12. DUODART [Concomitant]
     Active Substance: DUTASTERIDE\TAMSULOSIN
     Indication: PROPHYLAXIS
     Dosage: 0.5 MG, QD
     Route: 048
  13. NOVALGIN [Concomitant]
     Indication: RIB FRACTURE
     Dosage: 1 DF, UNK
     Route: 048
  14. SEVREDOL [Concomitant]
     Active Substance: MORPHINE
     Indication: PROPHYLAXIS
     Dosage: 10 MG, UNK
     Route: 058
  15. AMOCLAV [Concomitant]
     Active Substance: AMOXICILLIN\CLAVULANATE POTASSIUM
     Indication: PYREXIA
     Dosage: 875 MG, QD (DAILY DOSE: 1750 MG MILLIGRAM(S) EVERY DAY)
     Route: 048
     Dates: start: 20161206, end: 20161213
  16. ABRAXANE [Suspect]
     Active Substance: PACLITAXEL
     Indication: NON-SMALL CELL LUNG CANCER
     Dosage: 100 MG/M2, QD
     Route: 041
     Dates: start: 20161124
  17. LEVOFLOXACIN. [Concomitant]
     Active Substance: LEVOFLOXACIN
     Indication: PYREXIA
     Dosage: 500 MG, QD
     Route: 048
     Dates: start: 20170225, end: 20170302
  18. BISOPROLOL [Concomitant]
     Active Substance: BISOPROLOL
     Indication: HYPERTONIA
     Dosage: 2.5 MG, QD
     Route: 048

REACTIONS (6)
  - Haemoptysis [Recovered/Resolved]
  - Syncope [Recovered/Resolved]
  - Pyrexia [Recovered/Resolved]
  - Haemoptysis [Recovered/Resolved]
  - Thrombocytopenia [Not Recovered/Not Resolved]
  - Leukopenia [Not Recovered/Not Resolved]

NARRATIVE: CASE EVENT DATE: 20170218
